FAERS Safety Report 10544775 (Version 1)
Quarter: 2014Q4

REPORT INFORMATION
  Report Type: Spontaneous
  Country: US (occurrence: US)
  Receive Date: 20141027
  Receipt Date: 20141027
  Transmission Date: 20150529
  Serious: Yes (Other)
  Sender: FDA-Public Use
  Company Number: US-BRISTOL-MYERS SQUIBB COMPANY-21511910

PATIENT
  Age: 29 Year
  Sex: Male

DRUGS (1)
  1. SPRYCEL [Suspect]
     Active Substance: DASATINIB
     Indication: LEUKAEMIA

REACTIONS (5)
  - Aphasia [Unknown]
  - Seizure [Unknown]
  - Lymphocytosis [Unknown]
  - Large granular lymphocytosis [Unknown]
  - Migraine [Unknown]
